FAERS Safety Report 5464075-3 (Version None)
Quarter: 2007Q3

REPORT INFORMATION
  Report Type: 
  Country: None (occurrence: None)
  Receive Date: 20070921
  Receipt Date: 20070910
  Transmission Date: 20080115
  Serious: Yes (Hospitalization, Disabling)
  Sender: FDA-Public Use
  Company Number: FR-SP-E2007-05486

PATIENT
  Age: 21 Year
  Sex: Male

DRUGS (9)
  1. TUBERTEST [Suspect]
     Indication: TUBERCULIN TEST
     Route: 065
     Dates: start: 20060424
  2. TICE BCG [Suspect]
     Indication: IMMUNISATION
     Dosage: NOT REP
     Route: 065
     Dates: start: 20060606
  3. PRIORIX [Concomitant]
     Indication: IMMUNISATION
     Route: 065
     Dates: start: 20060429
  4. LEGALON (SILYMARIN) [Concomitant]
     Dates: start: 20060509
  5. ORBENINE (CLOXACILLIN) [Concomitant]
     Dates: start: 20060509
  6. VOLTAREN [Concomitant]
     Dates: start: 20060509
  7. DEXTROPROPOXYPHENE PARACETAMOL ISOMED [Concomitant]
     Dates: start: 20060509
  8. CEFPODOXIME PROXETIL [Concomitant]
     Dates: start: 20070415
  9. HELICIDINE 10% [Concomitant]
     Dates: start: 20060415

REACTIONS (13)
  - ABSCESS [None]
  - CHILLS [None]
  - DEPRESSIVE SYMPTOM [None]
  - FEELING HOT [None]
  - HEMIPLEGIA [None]
  - INFECTION [None]
  - INFLAMMATION [None]
  - INFLUENZA LIKE ILLNESS [None]
  - INJECTED LIMB MOBILITY DECREASED [None]
  - INJURY [None]
  - MUSCULAR WEAKNESS [None]
  - PAIN [None]
  - PYREXIA [None]
